FAERS Safety Report 25227408 (Version 1)
Quarter: 2025Q2

REPORT INFORMATION
  Report Type: Spontaneous
  Country: US (occurrence: US)
  Receive Date: 20250422
  Receipt Date: 20250422
  Transmission Date: 20250717
  Serious: No
  Sender: BIOGEN
  Company Number: US-BIOGEN-2025BI01298004

PATIENT
  Age: 47 Year
  Sex: Female

DRUGS (2)
  1. SKYCLARYS [Suspect]
     Active Substance: OMAVELOXOLONE
     Indication: Friedreich^s ataxia
     Route: 050
     Dates: start: 20250107
  2. SKYCLARYS [Suspect]
     Active Substance: OMAVELOXOLONE
     Route: 050
     Dates: start: 20250107, end: 20250315

REACTIONS (9)
  - Haematochezia [Unknown]
  - Coordination abnormal [Unknown]
  - Balance disorder [Unknown]
  - Gait inability [Unknown]
  - Mobility decreased [Unknown]
  - Aphasia [Unknown]
  - Tinnitus [Unknown]
  - Nausea [Unknown]
  - Decreased appetite [Unknown]

NARRATIVE: CASE EVENT DATE: 20250301
